FAERS Safety Report 18312959 (Version 2)
Quarter: 2020Q4

REPORT INFORMATION
  Report Type: Report from Study
  Country: RU (occurrence: RU)
  Receive Date: 20200925
  Receipt Date: 20201006
  Transmission Date: 20210113
  Serious: Yes (Hospitalization)
  Sender: FDA-Public Use
  Company Number: NVSC2020RU257787

PATIENT
  Age: 22 Year
  Sex: Female
  Weight: 63.6 kg

DRUGS (9)
  1. FINGOLIMOD. [Suspect]
     Active Substance: FINGOLIMOD
     Indication: MULTIPLE SCLEROSIS
     Dosage: 5 MG QD
     Route: 048
     Dates: start: 20170704, end: 20200917
  2. MEXIDOL [Concomitant]
     Active Substance: EMOXYPINE SUCCINATE
     Indication: MULTIPLE SCLEROSIS RELAPSE
     Dosage: 5 ML, QD
     Route: 042
  3. FINGOLIMOD. [Suspect]
     Active Substance: FINGOLIMOD
     Indication: MULTIPLE SCLEROSIS
     Dosage: UNK
     Route: 048
     Dates: start: 20150630, end: 20170703
  4. ATARAX [Concomitant]
     Active Substance: HYDROXYZINE HYDROCHLORIDE
     Indication: DYSSOMNIA
     Dosage: 125 MG, QD
     Route: 048
     Dates: start: 20200918
  5. OMEL [Concomitant]
     Indication: PROPHYLAXIS
     Dosage: 20 MG, BID
     Route: 065
     Dates: start: 20200916
  6. VEROSPIRON [Concomitant]
     Active Substance: SPIRONOLACTONE
     Indication: PRODUCT USED FOR UNKNOWN INDICATION
     Dosage: 25 MG, TID
     Route: 065
     Dates: start: 20200916
  7. PLACEBO [Suspect]
     Active Substance: UNSPECIFIED INGREDIENT
     Indication: MULTIPLE SCLEROSIS
     Dosage: UNK
     Route: 030
     Dates: start: 20150630, end: 20170703
  8. MEXIDOL [Concomitant]
     Active Substance: EMOXYPINE SUCCINATE
     Indication: PROGRESSIVE MULTIFOCAL LEUKOENCEPHALOPATHY
  9. THIOCTIC ACID [Concomitant]
     Active Substance: .ALPHA.-LIPOIC ACID
     Indication: PROPHYLAXIS
     Dosage: UNK
     Route: 065

REACTIONS (5)
  - Ligament sprain [Unknown]
  - Lymphopenia [Unknown]
  - Multiple sclerosis relapse [Not Recovered/Not Resolved]
  - Leukopenia [Unknown]
  - Dyssomnia [Unknown]

NARRATIVE: CASE EVENT DATE: 20170718
